FAERS Safety Report 16926934 (Version 1)
Quarter: 2019Q4

REPORT INFORMATION
  Report Type: Report from Study
  Country: FR (occurrence: FR)
  Receive Date: 20191016
  Receipt Date: 20191016
  Transmission Date: 20200122
  Serious: Yes (Death, Life-Threatening, Hospitalization, Disabling, Other)
  Sender: FDA-Public Use
  Company Number: FR-JNJFOC-20191011061

PATIENT

DRUGS (8)
  1. IBRUTINIB [Suspect]
     Active Substance: IBRUTINIB
     Indication: CHRONIC LYMPHOCYTIC LEUKAEMIA
     Route: 048
  2. IBRUTINIB [Suspect]
     Active Substance: IBRUTINIB
     Indication: ACUTE LYMPHOCYTIC LEUKAEMIA
  3. HEPARIN [Suspect]
     Active Substance: HEPARIN SODIUM
     Indication: PRODUCT USED FOR UNKNOWN INDICATION
  4. IBRUTINIB [Suspect]
     Active Substance: IBRUTINIB
     Indication: WALDENSTROM^S MACROGLOBULINAEMIA
  5. IBRUTINIB [Suspect]
     Active Substance: IBRUTINIB
     Indication: PRODUCT USED FOR UNKNOWN INDICATION
  6. IBRUTINIB [Suspect]
     Active Substance: IBRUTINIB
     Indication: LYMPHOMA
  7. IBRUTINIB [Suspect]
     Active Substance: IBRUTINIB
     Indication: PLASMA CELL MYELOMA
  8. IBRUTINIB [Suspect]
     Active Substance: IBRUTINIB
     Indication: MYELODYSPLASTIC SYNDROME

REACTIONS (20)
  - Arrhythmia supraventricular [Fatal]
  - Conduction disorder [Fatal]
  - Torsade de pointes [Unknown]
  - Pulmonary hypertension [Unknown]
  - Central nervous system haemorrhage [Fatal]
  - Embolism venous [Unknown]
  - Myocardial infarction [Unknown]
  - Cardiac failure [Fatal]
  - Diabetes mellitus [Unknown]
  - Vascular neoplasm [Unknown]
  - Dyslipidaemia [Unknown]
  - Incorrect dose administered [Unknown]
  - Product use in unapproved indication [Unknown]
  - Ventricular arrhythmia [Fatal]
  - Cerebrovascular accident [Fatal]
  - Cardiogenic shock [Unknown]
  - Myocarditis [Unknown]
  - Hypertensive end-organ damage [Unknown]
  - Cardiac valve disease [Unknown]
  - Off label use [Unknown]
